FAERS Safety Report 13274275 (Version 1)
Quarter: 2017Q1

REPORT INFORMATION
  Report Type: Spontaneous
  Country: GB (occurrence: GB)
  Receive Date: 20170227
  Receipt Date: 20170227
  Transmission Date: 20170428
  Serious: Yes (Life-Threatening, Hospitalization)
  Sender: FDA-Public Use
  Company Number: GB-SA-2017SA031326

PATIENT
  Sex: Female
  Weight: 60 kg

DRUGS (8)
  1. INDAPAMIDE. [Suspect]
     Active Substance: INDAPAMIDE
     Indication: ESSENTIAL HYPERTENSION
     Dosage: DOSE-2.5
     Route: 048
     Dates: start: 20170202, end: 20170209
  2. COCODAMOL [Concomitant]
     Active Substance: ACETAMINOPHEN\CODEINE PHOSPHATE
  3. DEPO-MEDRONE [Concomitant]
     Active Substance: METHYLPREDNISOLONE
  4. CYCLIZINE [Concomitant]
     Active Substance: CYCLIZINE
  5. HYDROCHLOROTHIAZIDE/LISINOPRIL [Suspect]
     Active Substance: HYDROCHLOROTHIAZIDE\LISINOPRIL
     Indication: ESSENTIAL HYPERTENSION
     Dosage: 20MG/12.5MG
     Route: 048
     Dates: start: 20161103, end: 20170209
  6. ATORVASTATIN [Concomitant]
     Active Substance: ATORVASTATIN
  7. DOXAZOSIN [Concomitant]
     Active Substance: DOXAZOSIN\DOXAZOSIN MESYLATE
  8. ANGITIL - SLOW RELEASE [Concomitant]
     Active Substance: DILTIAZEM HYDROCHLORIDE

REACTIONS (6)
  - Malaise [Unknown]
  - Hyponatraemic seizure [Recovering/Resolving]
  - Drug prescribing error [Unknown]
  - Vomiting [Unknown]
  - Nausea [Unknown]
  - Syncope [Unknown]

NARRATIVE: CASE EVENT DATE: 20170209
